FAERS Safety Report 22214419 (Version 1)
Quarter: 2023Q2

REPORT INFORMATION
  Report Type: Spontaneous
  Country: CN (occurrence: CN)
  Receive Date: 20230414
  Receipt Date: 20230414
  Transmission Date: 20230721
  Serious: Yes (Hospitalization, Other)
  Sender: FDA-Public Use
  Company Number: CN-ORGANON-O2304CHN000952

PATIENT
  Age: 31 Year
  Sex: Female
  Weight: 60.8 kg

DRUGS (8)
  1. FOLLITROPIN BETA [Suspect]
     Active Substance: FOLLITROPIN BETA
     Indication: Ovulation induction
     Dosage: 120IU, QD
     Route: 058
     Dates: start: 20230308, end: 20230312
  2. FOLLITROPIN BETA [Suspect]
     Active Substance: FOLLITROPIN BETA
     Dosage: 125IU, QD
     Route: 058
     Dates: start: 20230313, end: 20230318
  3. MENOTROPINS [Suspect]
     Active Substance: MENOTROPINS
     Indication: Ovulation induction
     Dosage: 75IU, QD
     Dates: start: 20230313, end: 20230319
  4. MENOTROPINS [Suspect]
     Active Substance: MENOTROPINS
     Dosage: 150IU, QD
     Dates: start: 20230320, end: 20230322
  5. CHORIONIC GONADOTROPHIN [Suspect]
     Active Substance: CHORIOGONADOTROPIN ALFA
     Indication: Ovulation induction
     Dosage: 100000 INTERNATIONAL UNIT, QD
     Dates: start: 20230322, end: 20230322
  6. SODIUM CHLORIDE [Concomitant]
     Active Substance: SODIUM CHLORIDE
     Indication: Vehicle solution use
     Dosage: 2ML, QD
     Route: 058
     Dates: start: 20230313, end: 20230319
  7. SODIUM CHLORIDE [Concomitant]
     Active Substance: SODIUM CHLORIDE
     Dosage: 2ML, QD
     Route: 058
     Dates: start: 20230320, end: 20230322
  8. SODIUM CHLORIDE [Concomitant]
     Active Substance: SODIUM CHLORIDE
     Dosage: 2ML, QD
     Route: 058
     Dates: start: 20230322

REACTIONS (8)
  - Abdominal distension [Recovering/Resolving]
  - Abdominal pain [Recovering/Resolving]
  - Nausea [Recovering/Resolving]
  - Vomiting [Recovering/Resolving]
  - Ovarian hyperstimulation syndrome [Recovering/Resolving]
  - Urine output decreased [Recovering/Resolving]
  - Dizziness [Recovering/Resolving]
  - Palpitations [Recovering/Resolving]

NARRATIVE: CASE EVENT DATE: 20230325
